FAERS Safety Report 20516206 (Version 2)
Quarter: 2022Q1

REPORT INFORMATION
  Report Type: Spontaneous
  Country: JP (occurrence: JP)
  Receive Date: 20220225
  Receipt Date: 20220311
  Transmission Date: 20220423
  Serious: Yes (Hospitalization, Other)
  Sender: FDA-Public Use
  Company Number: JP-JNJFOC-20220255454

PATIENT
  Age: 6 Decade
  Sex: Male

DRUGS (2)
  1. RISPERDAL [Suspect]
     Active Substance: RISPERIDONE
     Indication: Schizophrenia
     Dosage: DOSE UNKNOWN
     Route: 048
  2. INSULIN NOS [Concomitant]
     Active Substance: INSULIN NOS
     Indication: Diabetes mellitus
     Dosage: DOSE UNKNOWN
     Route: 065

REACTIONS (2)
  - Hospitalisation [Unknown]
  - Diabetes mellitus inadequate control [Unknown]
